FAERS Safety Report 7878415-9 (Version None)
Quarter: 2011Q4

REPORT INFORMATION
  Report Type: 
  Country: None (occurrence: None)
  Receive Date: 20111028
  Receipt Date: 20111021
  Transmission Date: 20120403
  Serious: Yes (Disabling)
  Sender: FDA-Public Use
  Company Number: 2011SP049776

PATIENT
  Age: 43 Year
  Sex: Female

DRUGS (1)
  1. NUVARING [Suspect]
     Indication: CONTRACEPTION
     Dates: start: 20111001

REACTIONS (3)
  - HEADACHE [None]
  - URETHRAL HAEMORRHAGE [None]
  - ABDOMINAL PAIN [None]
